FAERS Safety Report 11857040 (Version 1)
Quarter: 2015Q4

REPORT INFORMATION
  Report Type: Spontaneous
  Country: US (occurrence: US)
  Receive Date: 20151221
  Receipt Date: 20151221
  Transmission Date: 20160305
  Serious: Yes (Other)
  Sender: FDA-Public Use
  Company Number: US-PFIZER INC-2015455839

PATIENT
  Sex: Female

DRUGS (1)
  1. EFFEXOR XR [Suspect]
     Active Substance: VENLAFAXINE HYDROCHLORIDE
     Dosage: UNK
     Dates: start: 2004, end: 2005

REACTIONS (5)
  - Nightmare [Recovered/Resolved]
  - Drug ineffective [Unknown]
  - Weight increased [Recovered/Resolved]
  - Major depression [Recovered/Resolved]
  - Hypothyroidism [Recovered/Resolved]
